FAERS Safety Report 8980817 (Version 1)
Quarter: 2012Q4

REPORT INFORMATION
  Report Type: 
  Country: CA (occurrence: CA)
  Receive Date: 20121221
  Receipt Date: 20121221
  Transmission Date: 20130627
  Serious: Yes (Other)
  Sender: FDA-Public Use
  Company Number: CA-CELGENEUS-028-21880-11010407

PATIENT

DRUGS (6)
  1. REVLIMID [Suspect]
     Indication: CLL
     Dosage: 2.5 Milligram
     Route: 048
  2. REVLIMID [Suspect]
     Dosage: 5 Milligram
     Route: 048
  3. REVLIMID [Suspect]
     Dosage: 10 Milligram
     Route: 048
  4. REVLIMID [Suspect]
     Dosage: 25 Milligram
     Route: 048
  5. ALLOPURINOL [Concomitant]
     Indication: PROPHYLAXIS
     Dosage: 300 Milligram
     Route: 065
  6. ACETYLSALICYLIC ACID [Concomitant]
     Indication: THROMBOSIS PROPHYLAXIS
     Dosage: 81 Milligram
     Route: 065

REACTIONS (35)
  - Tumour flare [Unknown]
  - Diffuse large B-cell lymphoma [Unknown]
  - Neutropenia [Unknown]
  - Anaemia [Unknown]
  - Thrombocytopenia [Unknown]
  - Pneumonia [Unknown]
  - Hypocalcaemia [Unknown]
  - Hyponatraemia [Unknown]
  - Cellulitis [Unknown]
  - Rash [Unknown]
  - Hypophosphataemia [Unknown]
  - Herpes zoster disseminated [Unknown]
  - Pneumonia pneumococcal [Unknown]
  - Atrial fibrillation [Unknown]
  - Febrile neutropenia [Unknown]
  - Hyperkalaemia [Unknown]
  - Hypernatraemia [Unknown]
  - Alanine aminotransferase increased [Unknown]
  - Aspartate aminotransferase increased [Unknown]
  - Blood creatinine increased [Unknown]
  - Fatigue [Unknown]
  - Myalgia [Unknown]
  - Pruritus [Unknown]
  - Diarrhoea [Unknown]
  - Constipation [Unknown]
  - Peripheral sensory neuropathy [Unknown]
  - Oedema peripheral [Unknown]
  - Dizziness [Unknown]
  - Muscular weakness [Unknown]
  - Dyspnoea [Unknown]
  - Sinusitis [Unknown]
  - Wound infection [Unknown]
  - Chronic lymphocytic leukaemia [Unknown]
  - No therapeutic response [Unknown]
  - Infection [Unknown]
